FAERS Safety Report 17984375 (Version 1)
Quarter: 2020Q3

REPORT INFORMATION
  Report Type: Spontaneous
  Country: US (occurrence: US)
  Receive Date: 20200706
  Receipt Date: 20200706
  Transmission Date: 20201103
  Serious: Yes (Death)
  Sender: FDA-Public Use
  Company Number: None

PATIENT
  Age: 57 Year
  Sex: Female

DRUGS (22)
  1. ASPIRIN. [Concomitant]
     Active Substance: ASPIRIN
  2. FREESTYLE TEST LITE [Concomitant]
  3. INVOKANA [Concomitant]
     Active Substance: CANAGLIFLOZIN
  4. LISINOPRIL. [Concomitant]
     Active Substance: LISINOPRIL
  5. LORAZEPAM. [Concomitant]
     Active Substance: LORAZEPAM
  6. LANTUS [Concomitant]
     Active Substance: INSULIN GLARGINE
  7. METOPROLOL TARTRATE. [Concomitant]
     Active Substance: METOPROLOL TARTRATE
  8. MULTIVITAMIN [Concomitant]
     Active Substance: VITAMINS
  9. ONDANSETRON [Concomitant]
     Active Substance: ONDANSETRON
  10. ETOPOSIDE. [Suspect]
     Active Substance: ETOPOSIDE
     Indication: BREAST CANCER FEMALE
     Dosage: ?          OTHER FREQUENCY:T,1,C,DY,TH,2,C,DY;?
     Route: 048
  11. ATORVASTATIN [Concomitant]
     Active Substance: ATORVASTATIN
  12. METOCLOMPRAM [Concomitant]
  13. FISH OIL [Concomitant]
     Active Substance: FISH OIL
  14. GLIPIZIDE. [Concomitant]
     Active Substance: GLIPIZIDE
  15. GLUMETZA [Concomitant]
     Active Substance: METFORMIN HYDROCHLORIDE
  16. LEVO [Concomitant]
     Active Substance: LEVOBUPIVACAINE
  17. MAGMESIUM [Concomitant]
  18. HYDROCO/APAP [Concomitant]
     Active Substance: ACETAMINOPHEN\HYDROCODONE
  19. NOVOLOG [Concomitant]
     Active Substance: INSULIN ASPART
  20. VENALFAXINE [Concomitant]
  21. LIDO/PRILOCN [Concomitant]
  22. XOPENEX [Concomitant]
     Active Substance: LEVALBUTEROL HYDROCHLORIDE

REACTIONS (1)
  - Death [None]
